FAERS Safety Report 23081396 (Version 1)
Quarter: 2023Q4

REPORT INFORMATION
  Report Type: Spontaneous
  Country: CA (occurrence: CA)
  Receive Date: 20231018
  Receipt Date: 20231018
  Transmission Date: 20240110
  Serious: Yes (Hospitalization, Other)
  Sender: FDA-Public Use
  Company Number: CA-BAXTER-2023BAX033339

PATIENT
  Age: 81 Year
  Sex: Male
  Weight: 92 kg

DRUGS (10)
  1. CEFTRIAXONE [Suspect]
     Active Substance: CEFTRIAXONE\CEFTRIAXONE SODIUM
     Dosage: (CEFTRIAXONE FOR INJECTION USP), 2000.0 (UNITS NOT REPORTED), 1 EVERY 8 HOURS (DOSAGE FORM: INJECTIO
     Route: 042
  2. CLINDAMYCIN [Suspect]
     Active Substance: CLINDAMYCIN
     Dosage: (CLINDAMYCIN INJECTION USP), 900.0 MILLIGRAM, 1 EVERY 8 HOURS (DOSAGE FORM: INJECTION)
     Route: 042
  3. PIPERACILLIN SODIUM\TAZOBACTAM SODIUM [Suspect]
     Active Substance: PIPERACILLIN SODIUM\TAZOBACTAM SODIUM
     Dosage: 3.375 GRAM, 1 EVERY 6 HOURS
     Route: 042
  4. PIPERACILLIN SODIUM\TAZOBACTAM SODIUM [Suspect]
     Active Substance: PIPERACILLIN SODIUM\TAZOBACTAM SODIUM
     Dosage: 3.375 GRAM AT 1 EVERY 6 HOURS
     Route: 042
  5. FUROSEMIDE [Concomitant]
     Active Substance: FUROSEMIDE
     Dosage: AT AN UNSPECIFIED DOSE AND FREQUENCY, (DOSAGE FORM: NOT SPECIFIED)
     Route: 065
  6. HYDROCHLOROTHIAZIDE\LISINOPRIL [Concomitant]
     Active Substance: HYDROCHLOROTHIAZIDE\LISINOPRIL
     Dosage: AT AN UNSPECIFIED DOSE AND FREQUENCY, (TYPE Z)
     Route: 065
  7. PNEUMOVAX 23 [Concomitant]
     Active Substance: PNEUMOCOCCAL VACCINE, POLYVALENT 23
     Dosage: AT AN UNSPECIFIED DOSE AND FREQUENCY, (DOSAGE FORM: SOLUTION INTRAMUSCULAR)
     Route: 065
  8. PREGABALIN [Concomitant]
     Active Substance: PREGABALIN
     Dosage: UNK
     Route: 065
  9. SHINGRIX [Concomitant]
     Active Substance: RECOMBINANT VARICELLA ZOSTER VIRUS (VZV) GLYCOPROTEIN E
     Dosage: AT AN UNSPECIFIED DOSE AND FREQUENCY, (DOSAGE FORM: SUSPENSION INTRAMUSCULAR)
     Route: 065
  10. Taro calcipotriol/betamethasone [Concomitant]
     Dosage: AT AN UNSPECIFIED DOSE AND FREQUENCY, (TARO CALCIPOTRIOL/BETAMETHASONE GEL)
     Route: 065

REACTIONS (2)
  - Anal incontinence [Recovered/Resolved]
  - Clostridium difficile colitis [Recovered/Resolved]
